FAERS Safety Report 25191644 (Version 1)
Quarter: 2025Q2

REPORT INFORMATION
  Report Type: Report from Study
  Country: US (occurrence: US)
  Receive Date: 20250414
  Receipt Date: 20250414
  Transmission Date: 20250716
  Serious: Yes (Other)
  Sender: MYLAN
  Company Number: US-MYLANLABS-2025M1031728

PATIENT

DRUGS (3)
  1. HEPARIN [Suspect]
     Active Substance: HEPARIN SODIUM
     Indication: Anticoagulant therapy
  2. ARGATROBAN [Suspect]
     Active Substance: ARGATROBAN
     Indication: Heparin-induced thrombocytopenia
  3. FONDAPARINUX [Suspect]
     Active Substance: FONDAPARINUX
     Indication: Heparin-induced thrombocytopenia

REACTIONS (2)
  - Heparin-induced thrombocytopenia [Unknown]
  - Haemorrhage [Unknown]
